FAERS Safety Report 4923542-9 (Version None)
Quarter: 2006Q1

REPORT INFORMATION
  Report Type: 
  Country: None (occurrence: None)
  Receive Date: 20060221
  Receipt Date: 20060213
  Transmission Date: 20060701
  Serious: Yes (Disabling, Other)
  Sender: FDA-Public Use
  Company Number: 2006021796

PATIENT
  Sex: Female
  Weight: 45.3597 kg

DRUGS (2)
  1. ZOLOFT [Suspect]
     Indication: DEPRESSION
     Dosage: 50 MG (50 MG, ONE TIME ONLY), ORAL
     Route: 048
  2. XANAX [Concomitant]

REACTIONS (11)
  - BODY TEMPERATURE DECREASED [None]
  - CAT SCRATCH DISEASE [None]
  - DYSPNOEA [None]
  - HEMIPLEGIA [None]
  - MENOPAUSE [None]
  - PAIN [None]
  - PHARYNGEAL HYPOAESTHESIA [None]
  - PYREXIA [None]
  - SENSORY DISTURBANCE [None]
  - SERUM SEROTONIN INCREASED [None]
  - TENDONITIS [None]
